FAERS Safety Report 21840319 (Version 3)
Quarter: 2023Q1

REPORT INFORMATION
  Report Type: Report from Study
  Country: US (occurrence: US)
  Receive Date: 20230110
  Receipt Date: 20230306
  Transmission Date: 20230417
  Serious: Yes (Other)
  Sender: FDA-Public Use
  Company Number: US-ABBVIE-4261417

PATIENT
  Sex: Female

DRUGS (2)
  1. HUMIRA [Suspect]
     Active Substance: ADALIMUMAB
     Indication: Rheumatoid arthritis
     Dosage: CITRATE FREE, FORM STRENGTH: 40 MILLIGRAM
     Route: 058
     Dates: start: 20221221
  2. CORTISONE [Suspect]
     Active Substance: CORTISONE
     Indication: Product used for unknown indication
     Route: 065

REACTIONS (16)
  - Cataract [Unknown]
  - Systemic lupus erythematosus rash [Unknown]
  - Sinus headache [Recovering/Resolving]
  - Drug ineffective [Unknown]
  - Headache [Recovering/Resolving]
  - Insomnia [Recovered/Resolved]
  - Inflammation [Recovered/Resolved]
  - Nausea [Recovering/Resolving]
  - Hypertension [Unknown]
  - Rheumatoid arthritis [Recovered/Resolved]
  - Hangover [Recovering/Resolving]
  - Therapeutic response shortened [Unknown]
  - Fatigue [Recovered/Resolved]
  - Therapeutic response shortened [Recovered/Resolved]
  - Energy increased [Unknown]
  - Diarrhoea [Recovering/Resolving]
